FAERS Safety Report 7152463-9 (Version None)
Quarter: 2010Q4

REPORT INFORMATION
  Report Type: 
  Country: None (occurrence: None)
  Receive Date: 20101208
  Receipt Date: 20101208
  Transmission Date: 20110411
  Serious: Yes (Other)
  Sender: FDA-Public Use
  Company Number: None

PATIENT
  Sex: Male
  Weight: 95.2554 kg

DRUGS (2)
  1. ABILIFY [Suspect]
     Indication: MAJOR DEPRESSION
     Dosage: ABILIFY 10 MG DAILY PO
     Route: 048
     Dates: start: 20101108, end: 20101108
  2. BUPROPION SR [Suspect]
     Dosage: BUPROPION SR 100 MS DAILY PO
     Route: 048
     Dates: start: 20101108, end: 20101108

REACTIONS (5)
  - CONFUSIONAL STATE [None]
  - FALL [None]
  - HYPERHIDROSIS [None]
  - HYPOTENSION [None]
  - LOSS OF CONSCIOUSNESS [None]
